FAERS Safety Report 9843367 (Version 1)
Quarter: 2013Q4

REPORT INFORMATION
  Report Type: Spontaneous
  Country: US (occurrence: None)
  Receive Date: 20131223
  Receipt Date: 20131223
  Transmission Date: 20140711
  Serious: No
  Sender: FDA-Public Use
  Company Number: 219297LEO

PATIENT
  Age: 70 Year
  Sex: Male

DRUGS (1)
  1. PICATO [Suspect]
     Indication: PRECANCEROUS CELLS PRESENT
     Dosage: 1 TUBE DAILY FOR 3 DAYS ( 1 IN 1D)
     Dates: start: 20121030, end: 20121031

REACTIONS (2)
  - Application site vesicles [None]
  - Incorrect drug administration duration [None]
